FAERS Safety Report 14647733 (Version 3)
Quarter: 2022Q3

REPORT INFORMATION
  Report Type: Spontaneous
  Country: ES (occurrence: ES)
  Receive Date: 20180316
  Receipt Date: 20220916
  Transmission Date: 20221026
  Serious: Yes (Death, Hospitalization)
  Sender: FDA-Public Use
  Company Number: None

PATIENT
  Age: 92 Year
  Sex: Female

DRUGS (10)
  1. RAMIPRIL [Suspect]
     Active Substance: RAMIPRIL
     Indication: Suicide attempt
     Dosage: RAMIPRIL (2497A), UNIT DOSE : 17.5 MG, FREQUENCY TIME : 1 TOTAL
     Route: 048
     Dates: start: 20170611, end: 20170611
  2. OLANZAPINE [Suspect]
     Active Substance: OLANZAPINE
     Indication: Suicide attempt
     Dosage: 18 MG, TOTAL ,OLANZAPINA (2770A) , UNIT DOSE :18 MG ,FREQUENCY TIME : 1 DAY
     Route: 048
     Dates: start: 20170611, end: 20170611
  3. PREGABALIN [Suspect]
     Active Substance: PREGABALIN
     Indication: Suicide attempt
     Dosage: PREGABALINA (3897A), UNIT DOSE : 1050 MG, FREQUENCY TIME : 1 TOTAL,   DURATION :1 DAY
     Route: 048
     Dates: start: 20170611, end: 20170611
  4. ACETAMINOPHEN [Suspect]
     Active Substance: ACETAMINOPHEN
     Indication: Suicide attempt
     Dosage: PARACETAMOL (12A) , UNIT DOSE : 21 GRAM, FREQUENCY TIME : 1 TOTAL,   DURATION : 1 DAY
     Route: 048
     Dates: start: 20170611, end: 20170611
  5. OMEPRAZOLE [Suspect]
     Active Substance: OMEPRAZOLE
     Indication: Suicide attempt
     Dosage: OMEPRAZOL (2141A) , UNIT DOSE : 140 MG, FREQUENCY TIME : 1 TOTAL
     Route: 048
     Dates: start: 20170611, end: 20170611
  6. SIMVASTATIN [Suspect]
     Active Substance: SIMVASTATIN
     Indication: Suicide attempt
     Dosage: SIMVASTATINA (1023A) , UNKIT DOSE : 140 MG, FREQUENCY TIME : 1 TOTAL
     Route: 048
     Dates: start: 20170611, end: 20170611
  7. CITALOPRAM [Suspect]
     Active Substance: CITALOPRAM HYDROBROMIDE
     Indication: Suicide attempt
     Dosage: CITALOPRAM (2655A), UNIT DOSE : 140 MG, FREQUENCY TIME : 1 TOTAL
     Route: 048
     Dates: start: 20170611, end: 20170611
  8. ZOLPIDEM [Suspect]
     Active Substance: ZOLPIDEM TARTRATE
     Indication: Suicide attempt
     Dosage: ZOLPIDEM (2429A) , UNIT DOSE : 70 MG, FREQUENCY TIME : 1 TOTAL
     Route: 048
     Dates: start: 20170611, end: 20170611
  9. METFORMIN [Suspect]
     Active Substance: METFORMIN HYDROCHLORIDE
     Indication: Suicide attempt
     Dosage: METFORMINA (1359A), UNIT DOSE : 18 GRAM, DURATION : 1 DAY
     Route: 048
     Dates: start: 20170611, end: 20170611
  10. ALPRAZOLAM [Suspect]
     Active Substance: ALPRAZOLAM
     Indication: Suicide attempt
     Dosage: ALPRAZOLAM (99A) , UNIT DOSE : 7 MG, FREQUENCY TIME : 1 TOTAL,   DURATION : 1 DAY
     Route: 048
     Dates: start: 20170611, end: 20170611

REACTIONS (1)
  - Intentional overdose [Fatal]

NARRATIVE: CASE EVENT DATE: 20170611
